FAERS Safety Report 21545266 (Version 1)
Quarter: 2022Q4

REPORT INFORMATION
  Report Type: Spontaneous
  Country: GR (occurrence: GR)
  Receive Date: 20221103
  Receipt Date: 20221103
  Transmission Date: 20230113
  Serious: Yes (Other)
  Sender: FDA-Public Use
  Company Number: None

PATIENT
  Age: 80 Year
  Sex: Male
  Weight: 110 kg

DRUGS (9)
  1. ROSUVASTATIN [Suspect]
     Active Substance: ROSUVASTATIN
     Indication: Coronary artery disease
     Dosage: 1 DOSAGE FORM, QD
     Route: 048
     Dates: start: 20201024, end: 20210615
  2. ROSUVASTATIN [Suspect]
     Active Substance: ROSUVASTATIN
     Indication: Dyslipidaemia
  3. ATORVASTATIN [Suspect]
     Active Substance: ATORVASTATIN
     Indication: Coronary artery disease
     Dosage: 1 DOSAGE FORM, QD
     Route: 048
     Dates: start: 20201024, end: 20210615
  4. ATORVASTATIN [Suspect]
     Active Substance: ATORVASTATIN
     Indication: Dyslipidaemia
  5. PRAVASTATIN [Suspect]
     Active Substance: PRAVASTATIN
     Indication: Coronary artery disease
     Dosage: 1 DOSAGE FORM, QD
     Route: 048
     Dates: start: 20201024, end: 20210615
  6. PRAVASTATIN [Suspect]
     Active Substance: PRAVASTATIN
     Indication: Dyslipidaemia
  7. ASPIRIN\CLOPIDOGREL [Concomitant]
     Active Substance: ASPIRIN\CLOPIDOGREL
     Indication: Coronary artery disease
     Dosage: 1 DOSAGE FORM, QD
     Route: 048
     Dates: start: 20200923, end: 20210910
  8. GLUCOPHAGE [Concomitant]
     Active Substance: METFORMIN HYDROCHLORIDE
     Indication: Diabetes mellitus
     Dosage: 1 DOSAGE FORM, QD
     Route: 048
     Dates: start: 20200923, end: 20210910
  9. OLARTAN PLUS [Concomitant]
     Indication: Hypertension
     Dosage: 1 DOSAGE FORM, QD
     Route: 048
     Dates: start: 20200923, end: 20210910

REACTIONS (2)
  - Myalgia [Recovered/Resolved]
  - Hypertransaminasaemia [Recovered/Resolved]

NARRATIVE: CASE EVENT DATE: 20210601
